FAERS Safety Report 7573265-5 (Version None)
Quarter: 2011Q2

REPORT INFORMATION
  Report Type: 
  Country: None (occurrence: None)
  Receive Date: 20110627
  Receipt Date: 20110613
  Transmission Date: 20111010
  Serious: No
  Sender: FDA-Public Use
  Company Number: PHHY2011US52150

PATIENT

DRUGS (4)
  1. PANTOPRAZOLE [Concomitant]
  2. TASIGNA [Suspect]
     Dosage: UNK UKN, UNK
  3. METOPROLOL TARTRATE [Concomitant]
  4. FOSINOPRIL SODIUM [Concomitant]

REACTIONS (2)
  - ABSCESS [None]
  - PAIN IN JAW [None]
